FAERS Safety Report 10384559 (Version 1)
Quarter: 2014Q3

REPORT INFORMATION
  Report Type: Spontaneous
  Country: PL (occurrence: PL)
  Receive Date: 20140814
  Receipt Date: 20140814
  Transmission Date: 20150326
  Serious: Yes (Other)
  Sender: FDA-Public Use
  Company Number: PL-MERCK-1408POL002842

PATIENT
  Age: 60 Year
  Sex: Female

DRUGS (6)
  1. MADOPAR [Concomitant]
     Active Substance: BENSERAZIDE HYDROCHLORIDE\LEVODOPA
     Dosage: FORMULATION: TABLET; 5 TIMES A DAY 1 TABLET (CAPSULE)
     Route: 048
  2. MADOPAR [Concomitant]
     Active Substance: BENSERAZIDE HYDROCHLORIDE\LEVODOPA
     Indication: PARKINSON^S DISEASE
     Dosage: FORMULATION: TABLET; 5 TIMES A DAY 1 TABLET
     Route: 048
     Dates: start: 2004
  3. MADOPAR [Concomitant]
     Active Substance: BENSERAZIDE HYDROCHLORIDE\LEVODOPA
     Indication: PARKINSON^S DISEASE
     Dosage: FORMULATION:TABLET FOR ORAL SUSPENTION; 5 TIMES A DAY 1 TABLET FOR ORAL
     Route: 048
  4. SINEMET CR [Suspect]
     Active Substance: CARBIDOPA\LEVODOPA
     Indication: PARKINSON^S DISEASE
     Dosage: TOTAL DAILY DOSE: 175MG/700MG; 5 TIMES A DAY HALF TABLET AND 1 TABLET AT NIGHT
     Route: 048
     Dates: start: 2011, end: 201407
  5. SINEMET CR [Suspect]
     Active Substance: CARBIDOPA\LEVODOPA
     Dosage: TOTAL DAILY DOSE: 350/1400MG; 5 TIMES A DAY 1 TABLET AND 2 TABLET AT NIGHT
     Route: 048
     Dates: start: 201407
  6. ZOLOFT [Concomitant]
     Active Substance: SERTRALINE HYDROCHLORIDE
     Indication: MENTAL IMPAIRMENT
     Dosage: UNK
     Route: 048

REACTIONS (9)
  - Chromaturia [Not Recovered/Not Resolved]
  - Overdose [Unknown]
  - Multiple system atrophy [Unknown]
  - Pneumonia aspiration [Unknown]
  - Gastrostomy [Unknown]
  - Dysphagia [Unknown]
  - Speech disorder [Unknown]
  - Hyperhidrosis [Not Recovered/Not Resolved]
  - Wrong technique in drug usage process [Unknown]

NARRATIVE: CASE EVENT DATE: 2011
